FAERS Safety Report 25710019 (Version 2)
Quarter: 2025Q4

REPORT INFORMATION
  Report Type: Spontaneous
  Country: CA (occurrence: CA)
  Receive Date: 20250821
  Receipt Date: 20251009
  Transmission Date: 20260118
  Serious: Yes (Hospitalization)
  Sender: ROCHE
  Company Number: CA-ROCHE-10000368405

PATIENT
  Sex: Male

DRUGS (2)
  1. SOMATROPIN [Suspect]
     Active Substance: SOMATROPIN
     Indication: Product used for unknown indication
     Route: 058
  2. DILANTIN [Concomitant]
     Active Substance: PHENYTOIN

REACTIONS (3)
  - Pneumonia [Recovering/Resolving]
  - Hypothermia [Recovering/Resolving]
  - Pneumonia aspiration [Recovering/Resolving]
